FAERS Safety Report 5054010-4 (Version None)
Quarter: 2006Q2

REPORT INFORMATION
  Report Type: 
  Country: None (occurrence: None)
  Receive Date: 20060616
  Receipt Date: 20050913
  Transmission Date: 20061013
  Serious: Yes (Hospitalization)
  Sender: FDA-Public Use
  Company Number: 200516595US

PATIENT
  Sex: Male

DRUGS (3)
  1. LANTUS [Suspect]
     Dosage: 22 U INJ
  2. OPTICLIK [Suspect]
  3. ORAL AGENTS [Concomitant]

REACTIONS (1)
  - BLOOD GLUCOSE DECREASED [None]
